FAERS Safety Report 21332024 (Version 1)
Quarter: 2022Q3

REPORT INFORMATION
  Report Type: Spontaneous
  Country: US (occurrence: US)
  Receive Date: 20220914
  Receipt Date: 20220914
  Transmission Date: 20221026
  Serious: Yes (Other)
  Sender: FDA-Public Use
  Company Number: US-SA-SAC20220909001361

PATIENT
  Sex: Female

DRUGS (11)
  1. AUBAGIO [Suspect]
     Active Substance: TERIFLUNOMIDE
     Indication: Multiple sclerosis
     Dosage: 14 MG, QD
     Route: 048
     Dates: start: 201809
  2. DALFAMPRIDINE [Suspect]
     Active Substance: DALFAMPRIDINE
  3. CORGARD [Concomitant]
     Active Substance: NADOLOL
  4. VITAMIN D3 [Concomitant]
     Active Substance: CHOLECALCIFEROL
     Dosage: SOFT GEL
  5. BACLOFEN [Concomitant]
     Active Substance: BACLOFEN
  6. BETASERON [Concomitant]
     Active Substance: INTERFERON BETA-1B
  7. AMPYRA [Concomitant]
     Active Substance: DALFAMPRIDINE
  8. NEURONTIN [Concomitant]
     Active Substance: GABAPENTIN
  9. SERTRALINE HYDROCHLORIDE [Concomitant]
     Active Substance: SERTRALINE HYDROCHLORIDE
  10. DETROL LA [Concomitant]
     Active Substance: TOLTERODINE TARTRATE
  11. B-COMPLEX [VITAMIN B COMPLEX] [Concomitant]

REACTIONS (1)
  - Seizure [Unknown]
